FAERS Safety Report 4421614-9 (Version None)
Quarter: 2004Q3

REPORT INFORMATION
  Report Type: 
  Country: None (occurrence: None)
  Receive Date: 20040806
  Receipt Date: 20040720
  Transmission Date: 20050211
  Serious: Yes (Life-Threatening)
  Sender: FDA-Public Use
  Company Number: DE_040713976

PATIENT
  Age: 35 Year
  Sex: Female
  Weight: 71 kg

DRUGS (33)
  1. XIGRIS [Suspect]
     Indication: STREPTOCOCCAL SEPSIS
     Dosage: 24 MG/KG/HR
     Dates: start: 20040716, end: 20040719
  2. HYDROCORTISON [Concomitant]
  3. HEPARIN [Concomitant]
  4. ATENOLOL [Concomitant]
  5. PROPRANOLOL [Concomitant]
  6. SUFENTA [Concomitant]
  7. KETANEST (KETAMINE) [Concomitant]
  8. DORMICUM (MIDAZOLAM MALEATE) [Concomitant]
  9. INSULIN [Concomitant]
  10. GLUCOSE [Concomitant]
  11. LIPOFUNDIN [Concomitant]
  12. FUROSEMIDE [Concomitant]
  13. TAZOBAC [Concomitant]
  14. ZYVOX [Concomitant]
  15. DIFLUCAN [Concomitant]
  16. ANIRACETAM [Concomitant]
  17. KALYMIN (PYRIDOSTIGMINE BROMIDE) [Concomitant]
  18. METOCLOPRAMIDE HYDROCHLORIDE [Concomitant]
  19. BEPANTHEN [Concomitant]
  20. KONAHION (PHYTOMENADIONE) [Concomitant]
  21. NAC (ACETYLCYSTEINE M/G) [Concomitant]
  22. METRONIDAZOLE [Concomitant]
  23. NOVALGIN (METAMIZOLE SODIUM ONOHYDRATE) [Concomitant]
  24. KCL (POTASSIUM CHLORIDE) [Concomitant]
  25. AQUAPHOR [Concomitant]
  26. IRENAT (SODIUM PERCHLORATE) [Concomitant]
  27. LACTULOSE [Concomitant]
  28. ATROPINE SULFATE [Concomitant]
  29. PREDNISOLONE [Concomitant]
  30. VIDISIC [Concomitant]
  31. BEPANTHEN [Concomitant]
  32. COLDASTOP [Concomitant]
  33. NYSTATIN [Concomitant]

REACTIONS (4)
  - BRAIN COMPRESSION [None]
  - BRAIN OEDEMA [None]
  - HAEMORRHAGE INTRACRANIAL [None]
  - HYPERNATRAEMIA [None]
